FAERS Safety Report 5029864-8 (Version None)
Quarter: 2006Q2

REPORT INFORMATION
  Report Type: 
  Country: None (occurrence: None)
  Receive Date: 20060620
  Receipt Date: 20060614
  Transmission Date: 20061013
  Serious: Yes (Death, Hospitalization, Disabling)
  Sender: FDA-Public Use
  Company Number: 2006AP02729

PATIENT
  Age: 30 Year
  Sex: Male

DRUGS (4)
  1. SEROQUEL [Suspect]
     Indication: SCHIZOPHRENIA
     Route: 048
     Dates: end: 20060604
  2. SEROQUEL [Suspect]
     Indication: CONVERSION DISORDER
     Route: 048
     Dates: end: 20060604
  3. CERCINE [Suspect]
     Route: 042
     Dates: start: 20060606
  4. ROHYPNOL [Concomitant]
     Route: 048
     Dates: start: 20040101

REACTIONS (5)
  - AKINESIA [None]
  - CARDIO-RESPIRATORY ARREST [None]
  - EATING DISORDER [None]
  - MALNUTRITION [None]
  - STUPOR [None]
